FAERS Safety Report 5247000-X (Version None)
Quarter: 2007Q1

REPORT INFORMATION
  Report Type: 
  Country: None (occurrence: None)
  Receive Date: 20070226
  Receipt Date: 20070214
  Transmission Date: 20070707
  Serious: Yes (Hospitalization)
  Sender: FDA-Public Use
  Company Number: FR-GLAXOSMITHKLINE-B0458329A

PATIENT
  Age: 62 Year
  Sex: Female

DRUGS (5)
  1. PAROXETINE HCL [Suspect]
     Route: 048
     Dates: start: 20010701, end: 20040617
  2. ANAFRANIL [Suspect]
     Route: 048
     Dates: start: 20010701, end: 20040617
  3. LEVOTHYROXINE SODIUM [Concomitant]
     Indication: DRUG USE FOR UNKNOWN INDICATION
     Route: 048
     Dates: start: 19770101
  4. LEXOMIL [Concomitant]
     Indication: DRUG USE FOR UNKNOWN INDICATION
     Route: 048
  5. MIZOLLEN [Concomitant]
     Indication: DRUG USE FOR UNKNOWN INDICATION
     Route: 048

REACTIONS (2)
  - DYSKINESIA [None]
  - MEMORY IMPAIRMENT [None]
